FAERS Safety Report 23480728 (Version 3)
Quarter: 2024Q2

REPORT INFORMATION
  Report Type: Report from Study
  Country: US (occurrence: US)
  Receive Date: 20240205
  Receipt Date: 20240408
  Transmission Date: 20240717
  Serious: Yes (Other)
  Sender: FDA-Public Use
  Company Number: US-INSMED, INC.-2024-00382-US

PATIENT
  Sex: Female

DRUGS (6)
  1. ARIKAYCE [Suspect]
     Active Substance: AMIKACIN
     Indication: Product used for unknown indication
     Dosage: 590 MILLIGRAM, QD
     Route: 055
     Dates: start: 20240124, end: 20240124
  2. ALBUTEROL [Concomitant]
     Active Substance: ALBUTEROL
     Indication: Product used for unknown indication
     Dosage: UNK, UNK
     Route: 055
  3. OXYGEN [Concomitant]
     Active Substance: OXYGEN
     Indication: Product used for unknown indication
     Dosage: 2 LITER, UNK
     Route: 065
  4. OXYGEN [Concomitant]
     Active Substance: OXYGEN
     Dosage: 3 LITER, UNK
     Route: 065
  5. OXYGEN [Concomitant]
     Active Substance: OXYGEN
     Dosage: 2.5 LITER, UNK
     Route: 065
  6. OXYGEN [Concomitant]
     Active Substance: OXYGEN
     Dosage: 2 LITER, UNK
     Route: 065

REACTIONS (6)
  - Oxygen saturation decreased [Recovering/Resolving]
  - Dry throat [Not Recovered/Not Resolved]
  - Bronchospasm [Unknown]
  - Dyspnoea [Not Recovered/Not Resolved]
  - Intentional underdose [Unknown]
  - Incorrect dose administered [Unknown]

NARRATIVE: CASE EVENT DATE: 20240101
